FAERS Safety Report 18057060 (Version 3)
Quarter: 2020Q4

REPORT INFORMATION
  Report Type: Spontaneous
  Country: US (occurrence: US)
  Receive Date: 20200722
  Receipt Date: 20201106
  Transmission Date: 20210113
  Serious: Yes (Other)
  Sender: FDA-Public Use
  Company Number: US-GILEAD-2020-0473968

PATIENT
  Age: 19 Year
  Sex: Female

DRUGS (2)
  1. VIREAD [Suspect]
     Active Substance: TENOFOVIR DISOPROXIL FUMARATE
     Indication: HIV INFECTION
     Dosage: UNK
     Route: 048
     Dates: start: 2002
  2. TRUVADA [Suspect]
     Active Substance: EMTRICITABINE\TENOFOVIR DISOPROXIL FUMARATE
     Indication: HIV INFECTION
     Dosage: UNK
     Route: 048
     Dates: start: 200201

REACTIONS (9)
  - Bone loss [Unknown]
  - Fracture [Unknown]
  - Osteonecrosis [Unknown]
  - Urinary incontinence [Not Recovered/Not Resolved]
  - Renal failure [Unknown]
  - Neuropathy peripheral [Not Recovered/Not Resolved]
  - Asthenia [Not Recovered/Not Resolved]
  - Chronic kidney disease [Unknown]
  - Bone density decreased [Unknown]

NARRATIVE: CASE EVENT DATE: 198507
